FAERS Safety Report 20381883 (Version 4)
Quarter: 2022Q3

REPORT INFORMATION
  Report Type: Report from Study
  Country: FR (occurrence: FR)
  Receive Date: 20220127
  Receipt Date: 20220826
  Transmission Date: 20221027
  Serious: Yes (Hospitalization, Other)
  Sender: FDA-Public Use
  Company Number: FR-Accord-251646

PATIENT
  Age: 62 Year
  Sex: Male
  Weight: 112 kg

DRUGS (8)
  1. AMLODIPINE [Interacting]
     Active Substance: AMLODIPINE BESYLATE
     Dosage: INTERVAL: TOTAL
     Route: 048
  2. ATORVASTATIN [Interacting]
     Active Substance: ATORVASTATIN
     Route: 048
  3. HYDROCHLOROTHIAZIDE [Interacting]
     Active Substance: HYDROCHLOROTHIAZIDE
     Route: 048
  4. BISOPROLOL [Interacting]
     Active Substance: BISOPROLOL
     Route: 048
  5. ACETAMINOPHEN [Interacting]
     Active Substance: ACETAMINOPHEN
     Dosage: 4 G
     Route: 048
  6. APIXABAN [Interacting]
     Active Substance: APIXABAN
     Dosage: PRESUMED INGESTED DOSE 23 X 10 MG?(230 MG)
     Route: 048
  7. POTASSIUM [Interacting]
     Active Substance: POTASSIUM
     Route: 048
  8. CLOMIPRAMINE [Interacting]
     Active Substance: CLOMIPRAMINE
     Route: 048

REACTIONS (6)
  - Shock [Unknown]
  - Suicide attempt [Unknown]
  - Overdose [Unknown]
  - Toxicity to various agents [Unknown]
  - Drug interaction [Unknown]
  - Cardiovascular disorder [Unknown]
